FAERS Safety Report 6265950-2 (Version None)
Quarter: 2009Q3

REPORT INFORMATION
  Report Type: 
  Country: None (occurrence: None)
  Receive Date: 20090709
  Receipt Date: 20090709
  Transmission Date: 20100115
  Serious: No
  Sender: FDA-Public Use
  Company Number: None

PATIENT
  Sex: Female
  Weight: 86.1834 kg

DRUGS (1)
  1. CRESTOR [Suspect]
     Indication: BLOOD CHOLESTEROL INCREASED
     Dosage: 1XDAY
     Dates: start: 20090522, end: 20090627

REACTIONS (6)
  - DISCOMFORT [None]
  - INSOMNIA [None]
  - MUSCLE TIGHTNESS [None]
  - MYALGIA [None]
  - PAIN IN EXTREMITY [None]
  - WEIGHT INCREASED [None]
